FAERS Safety Report 19711769 (Version 1)
Quarter: 2021Q3

REPORT INFORMATION
  Report Type: Other
  Country: GB (occurrence: GB)
  Receive Date: 20210816
  Receipt Date: 20210816
  Transmission Date: 20211014
  Serious: Yes (Other)
  Sender: FDA-Public Use
  Company Number: GB-OSMOTICA_PHARMACEUTICAL_US_LLC-POI0573202100304

PATIENT
  Age: 69 Year
  Sex: Female

DRUGS (2)
  1. DIVIGEL [Suspect]
     Active Substance: ESTRADIOL
     Indication: TRANSGENDER HORMONAL THERAPY
     Dates: start: 1998, end: 2018
  2. CYPROTERONE ACETATE [Suspect]
     Active Substance: CYPROTERONE ACETATE
     Indication: TRANSGENDER HORMONAL THERAPY
     Dates: start: 1998, end: 2018

REACTIONS (1)
  - Meningioma [Recovering/Resolving]

NARRATIVE: CASE EVENT DATE: 2013
